FAERS Safety Report 7737925-5 (Version None)
Quarter: 2011Q3

REPORT INFORMATION
  Report Type: 
  Country: None (occurrence: None)
  Receive Date: 20110908
  Receipt Date: 20110906
  Transmission Date: 20111222
  Serious: Yes (Hospitalization)
  Sender: FDA-Public Use
  Company Number: PHEH2011US03461

PATIENT
  Sex: Male
  Weight: 56.689 kg

DRUGS (1)
  1. EXJADE [Suspect]
     Dosage: 1500 MG DAILY
     Route: 048
     Dates: start: 20061019

REACTIONS (2)
  - VIRAL INFECTION [None]
  - PNEUMONIA [None]
